FAERS Safety Report 6007305-1 (Version None)
Quarter: 2008Q4

REPORT INFORMATION
  Report Type: 
  Country: None (occurrence: None)
  Receive Date: 20081217
  Receipt Date: 20080303
  Transmission Date: 20090506
  Serious: No
  Sender: FDA-Public Use
  Company Number: US-ASTRAZENECA-2008UW04270

PATIENT
  Age: 60 Year
  Sex: Female
  Weight: 77.1 kg

DRUGS (8)
  1. CRESTOR [Suspect]
     Indication: HYPERCHOLESTEROLAEMIA
     Route: 048
     Dates: start: 20080201
  2. SYNTHROID [Concomitant]
  3. STRATTERA [Concomitant]
  4. SEROQUEL XR [Concomitant]
     Route: 048
  5. ZONEGRAN [Concomitant]
  6. DEXTROSTAT [Concomitant]
  7. ESTRATEST H.S. [Concomitant]
  8. KLONOPIN WAFERS [Concomitant]

REACTIONS (5)
  - ABNORMAL DREAMS [None]
  - ANXIETY [None]
  - HEART RATE INCREASED [None]
  - PALPITATIONS [None]
  - SLEEP DISORDER [None]
